FAERS Safety Report 8587582-3 (Version None)
Quarter: 2012Q3

REPORT INFORMATION
  Report Type: 
  Country: None (occurrence: None)
  Receive Date: 20120810
  Receipt Date: 20120612
  Transmission Date: 20120928
  Serious: Yes (Other)
  Sender: FDA-Public Use
  Company Number: PHHY2012CN068558

PATIENT
  Age: 1 Year
  Sex: Female

DRUGS (1)
  1. OXCARBAZEPINE [Suspect]
     Indication: GRAND MAL CONVULSION
     Dosage: 22 MG/KG, DAILY
     Route: 048

REACTIONS (3)
  - MYOCLONUS [None]
  - MUSCULAR WEAKNESS [None]
  - MYOCLONIC EPILEPSY [None]
